FAERS Safety Report 8970938 (Version 1)
Quarter: 2012Q4

REPORT INFORMATION
  Report Type: 
  Country: JP (occurrence: JP)
  Receive Date: 20121218
  Receipt Date: 20121218
  Transmission Date: 20130627
  Serious: Yes (Other)
  Sender: FDA-Public Use
  Company Number: JP-ASTELLAS-2012JP011737

PATIENT
  Sex: Female

DRUGS (2)
  1. BETANIS [Suspect]
     Indication: HYPERTONIC BLADDER
     Dosage: UNK
     Route: 048
  2. BETANIS [Suspect]
     Dosage: UNK
     Route: 048

REACTIONS (1)
  - Sick sinus syndrome [Recovered/Resolved]
